FAERS Safety Report 25542759 (Version 1)
Quarter: 2025Q3

REPORT INFORMATION
  Report Type: Report from Study
  Country: US (occurrence: US)
  Receive Date: 20250711
  Receipt Date: 20250711
  Transmission Date: 20251021
  Serious: No
  Sender: BIOVITRUM
  Company Number: US-BIOVITRUM-2025-US-006293

PATIENT
  Age: 30 Year
  Sex: Female

DRUGS (2)
  1. KINERET [Suspect]
     Active Substance: ANAKINRA
     Indication: Hereditary neuropathic amyloidosis
     Route: 058
  2. HUMIRA [Concomitant]
     Active Substance: ADALIMUMAB
     Indication: Product used for unknown indication

REACTIONS (10)
  - Hereditary neuropathic amyloidosis [Unknown]
  - Condition aggravated [Unknown]
  - Injection site pain [Unknown]
  - Myalgia [Unknown]
  - Intentional product misuse [Not Recovered/Not Resolved]
  - Urinary tract infection [Unknown]
  - Injection site bruising [Unknown]
  - Product dose omission issue [Unknown]
  - Emotional disorder [Unknown]
  - Ill-defined disorder [Unknown]
